FAERS Safety Report 5329765-1 (Version None)
Quarter: 2007Q2

REPORT INFORMATION
  Report Type: 
  Country: None (occurrence: None)
  Receive Date: 20070515
  Receipt Date: 20070503
  Transmission Date: 20071010
  Serious: Yes (Other)
  Sender: FDA-Public Use
  Company Number: GXKR2007CH04040

PATIENT
  Age: 89 Year
  Sex: Female
  Weight: 51 kg

DRUGS (13)
  1. LISINOPRIL [Suspect]
     Dosage: SEE IMAGE
     Route: 048
     Dates: start: 20061006, end: 20061009
  2. LISINOPRIL [Suspect]
     Dosage: SEE IMAGE
     Route: 048
     Dates: start: 20061117
  3. ALDACTONE [Suspect]
     Indication: CARDIAC FAILURE CONGESTIVE
     Dosage: 12.5 MG, QD, ORAL
     Route: 048
     Dates: start: 20061025, end: 20061105
  4. VENOFER [Suspect]
     Dosage: 100 MG, QW2, INTRAVENOUS
     Route: 042
     Dates: start: 20061103, end: 20061105
  5. ROCEPHIN [Suspect]
     Indication: PYELONEPHRITIS
     Dosage: 1 G, QD
     Dates: start: 20060929, end: 20061008
  6. ROCEPHIN [Suspect]
     Indication: PYELONEPHRITIS
     Dosage: 1 G, QD
     Dates: start: 20061012, end: 20061018
  7. DIGOXIN [Concomitant]
  8. NEXIUM [Concomitant]
  9. SINTROM [Concomitant]
  10. ASPIRIN [Concomitant]
  11. MOVICOL (MACROGOL, POTASSIUM CHLORIDE, SODIUM BICARBONATE, SODIUM CHLO [Concomitant]
  12. VITAMIN B12 (CYANOCOBLAMIN) INJECTION [Concomitant]
  13. LAXOBERON (SODIUM PICOSULFATE) [Concomitant]

REACTIONS (10)
  - CARDIAC FLUTTER [None]
  - CONDITION AGGRAVATED [None]
  - DEHYDRATION [None]
  - HENOCH-SCHONLEIN PURPURA [None]
  - HYPOCHROMIC ANAEMIA [None]
  - IRON DEFICIENCY ANAEMIA [None]
  - JOINT SWELLING [None]
  - LEUKOCYTOCLASTIC VASCULITIS [None]
  - PETECHIAE [None]
  - RENAL FAILURE ACUTE [None]
